FAERS Safety Report 4314773-X (Version None)
Quarter: 2004Q1

REPORT INFORMATION
  Report Type: 
  Country: None (occurrence: None)
  Receive Date: 20040308
  Receipt Date: 20040223
  Transmission Date: 20041129
  Serious: Yes (Hospitalization)
  Sender: FDA-Public Use
  Company Number: 2004CG00370

PATIENT
  Age: 79 Year
  Sex: Male

DRUGS (2)
  1. IRESSA [Suspect]
     Indication: LUNG NEOPLASM MALIGNANT
     Dosage: 250 MG DAILY PO
     Route: 048
     Dates: start: 20030401, end: 20030703
  2. IRESSA [Suspect]
     Indication: LUNG NEOPLASM MALIGNANT
     Dosage: 250 MG DAILY PO
     Route: 048
     Dates: start: 20031212, end: 20030111

REACTIONS (7)
  - ACNE [None]
  - ECZEMA [None]
  - LICHEN PLANUS [None]
  - OEDEMA [None]
  - PHOTOSENSITIVITY REACTION [None]
  - SKIN ATROPHY [None]
  - TOXIC SKIN ERUPTION [None]
